FAERS Safety Report 8772731 (Version 3)
Quarter: 2012Q4

REPORT INFORMATION
  Report Type: 
  Country: US (occurrence: US)
  Receive Date: 20120907
  Receipt Date: 20121019
  Transmission Date: 20130627
  Serious: Yes (Hospitalization, Other)
  Sender: FDA-Public Use
  Company Number: CHPA2012US018924

PATIENT
  Age: 94 Year
  Sex: Female

DRUGS (9)
  1. MAALOX ANTACID/ANTIGAS RS LIQ COOL MINT [Suspect]
     Indication: FLATULENCE
     Dosage: 6 TSP, at night
     Route: 048
  2. KERI ORIGINAL [Suspect]
     Indication: DRY SKIN
     Dosage: UNK, Daily
     Route: 061
  3. WATER PILLS [Concomitant]
     Route: 048
  4. VITAMIN B12 FOR INJECTION [Concomitant]
     Dosage: UNK, every month
  5. COUMADIN ^BOOTS^ [Concomitant]
     Indication: ANTICOAGULANT THERAPY
     Dosage: 1/2 pill on Monday, Wednesday, Friday; 1 pill on Tuesday, Thursday, Saturday, Sunday
     Route: 048
  6. OCUVITE                            /01053801/ [Concomitant]
     Indication: SUPPLEMENTATION THERAPY
     Dosage: 1 DF, QD
     Route: 048
     Dates: start: 1997
  7. CALTRATE [Concomitant]
     Indication: SUPPLEMENTATION THERAPY
     Dosage: 1 DF, QD
     Route: 048
     Dates: start: 1990
  8. INFLUENZA VACCINE [Concomitant]
  9. VITAMIN D [Concomitant]
     Dosage: 1 pill per week

REACTIONS (30)
  - Heart valve incompetence [Recovered/Resolved]
  - Heart rate increased [Recovered/Resolved]
  - Cerebrovascular accident [Recovered/Resolved]
  - Hypertension [Not Recovered/Not Resolved]
  - Oesophageal spasm [Not Recovered/Not Resolved]
  - Gastritis [Recovered/Resolved]
  - Respiratory tract inflammation [Not Recovered/Not Resolved]
  - Goitre [Unknown]
  - Thyroid disorder [Unknown]
  - Thinking abnormal [Recovered/Resolved]
  - Flatulence [Recovered/Resolved]
  - Joint stiffness [Not Recovered/Not Resolved]
  - Arthritis [Not Recovered/Not Resolved]
  - Carpal tunnel syndrome [Not Recovered/Not Resolved]
  - Skin discolouration [Not Recovered/Not Resolved]
  - Papule [Not Recovered/Not Resolved]
  - Oedema peripheral [Recovered/Resolved]
  - Insomnia [Recovered/Resolved]
  - Spider vein [Not Recovered/Not Resolved]
  - Breast pain [Recovered/Resolved]
  - Skin disorder [Not Recovered/Not Resolved]
  - Renal disorder [Recovered/Resolved]
  - Abdominal pain upper [Recovered/Resolved]
  - Therapeutic response unexpected [Unknown]
  - Vomiting [Recovered/Resolved]
  - Vitreous floaters [Not Recovered/Not Resolved]
  - Vision blurred [Not Recovered/Not Resolved]
  - Malaise [Recovered/Resolved]
  - Incorrect drug administration duration [Unknown]
  - Incorrect dose administered [Unknown]
